FAERS Safety Report 8106877-0 (Version None)
Quarter: 2011Q4

REPORT INFORMATION
  Report Type: 
  Country: None (occurrence: None)
  Receive Date: 20111227
  Receipt Date: 20111021
  Transmission Date: 20120403
  Serious: No
  Sender: FDA-Public Use
  Company Number: PHEH2011US04842

PATIENT
  Age: 37 Year
  Sex: Male
  Weight: 83 kg

DRUGS (6)
  1. BACLOFEN [Concomitant]
  2. MULTIVITAMINS (ASCORBIC ACID, ERGOCALCIFEROL, FOLIC ACID, NICOTINAMIDE [Concomitant]
  3. GILENYA [Suspect]
     Indication: MULTIPLE SCLEROSIS
     Dosage: 0.5 MG, QD, ORAL
     Route: 048
     Dates: start: 20110906
  4. NEXIUM [Concomitant]
  5. DETROL [Concomitant]
  6. AMBIEN [Concomitant]

REACTIONS (6)
  - FEELING ABNORMAL [None]
  - MALAISE [None]
  - LYMPHADENOPATHY [None]
  - HEADACHE [None]
  - NASOPHARYNGITIS [None]
  - OROPHARYNGEAL PAIN [None]
